FAERS Safety Report 11343378 (Version 1)
Quarter: 2015Q3

REPORT INFORMATION
  Report Type: Report from Study
  Country: TR (occurrence: TR)
  Receive Date: 20150806
  Receipt Date: 20150806
  Transmission Date: 20151125
  Serious: Yes (Other)
  Sender: FDA-Public Use
  Company Number: TR-ROCHE-1610345

PATIENT

DRUGS (4)
  1. UNFRACTIONATED HEPARIN [Suspect]
     Active Substance: HEPARIN SODIUM
     Indication: DEEP VEIN THROMBOSIS
     Dosage: 5000 U
     Route: 042
  2. WARFARIN SODIUM. [Suspect]
     Active Substance: WARFARIN SODIUM
     Indication: PRODUCT USED FOR UNKNOWN INDICATION
     Route: 065
  3. ALTEPLASE [Suspect]
     Active Substance: ALTEPLASE
     Indication: DEEP VEIN THROMBOSIS
     Dosage: 0.05 MG/KG/HOUR
     Route: 042
  4. HEPARIN [Suspect]
     Active Substance: HEPARIN SODIUM
     Indication: DEEP VEIN THROMBOSIS
     Dosage: HEPARINIZED SALINE SOLUTION (25000 IU/1000 ML) INFUSION AT A RATE OF 35-70 ML/H.
     Route: 042

REACTIONS (2)
  - Product use issue [Unknown]
  - Deep vein thrombosis [Unknown]
